FAERS Safety Report 16746675 (Version 3)
Quarter: 2020Q4

REPORT INFORMATION
  Report Type: Spontaneous
  Country: MY (occurrence: MY)
  Receive Date: 20190827
  Receipt Date: 20201218
  Transmission Date: 20210113
  Serious: Yes (Hospitalization)
  Sender: FDA-Public Use
  Company Number: MY-ROCHE-2387850

PATIENT
  Age: 70 Year
  Sex: Male

DRUGS (1)
  1. ACCENTRIX [Suspect]
     Active Substance: RANIBIZUMAB
     Indication: AGE-RELATED MACULAR DEGENERATION
     Route: 031

REACTIONS (4)
  - Corneal opacity [Not Recovered/Not Resolved]
  - Intraocular pressure increased [Not Recovered/Not Resolved]
  - Pain [Not Recovered/Not Resolved]
  - Angle closure glaucoma [Not Recovered/Not Resolved]
